FAERS Safety Report 6913700-6 (Version None)
Quarter: 2010Q3

REPORT INFORMATION
  Report Type: 
  Country: None (occurrence: None)
  Receive Date: 20100803
  Receipt Date: 20100721
  Transmission Date: 20110219
  Serious: Yes (Hospitalization)
  Sender: FDA-Public Use
  Company Number: S03-DEN-02058-01

PATIENT
  Age: 76 Year
  Sex: Male

DRUGS (4)
  1. MEMANTINE [Suspect]
     Indication: DEMENTIA
     Dosage: 10 MG (10 MG,  IN 1 D), ORAL
     Route: 048
     Dates: start: 20030201, end: 20030203
  2. CIPRAMIL (CITALOPRAM HYDROBROMIDE) (TABLETS) (CITALOPRAM HYDROBROMIDE) [Concomitant]
  3. MIXTARD INSULIN (SUSPENSION) [Concomitant]
  4. ARICEPT (DONEPEZIL HYDROCHLORIDE) (TABLETS) (DONEPEZIL HYDROCHLORIDE) [Concomitant]

REACTIONS (2)
  - RASH PRURITIC [None]
  - URTICARIA [None]
